FAERS Safety Report 5336079-2 (Version None)
Quarter: 2007Q2

REPORT INFORMATION
  Report Type: 
  Country: None (occurrence: None)
  Receive Date: 20070302
  Receipt Date: 20070119
  Transmission Date: 20071010
  Serious: No
  Sender: FDA-Public Use
  Company Number: PHEH2007US01055

PATIENT
  Sex: 0

DRUGS (1)
  1. ENABLEX [Suspect]
     Dosage: 15 MG, QD

REACTIONS (1)
  - DRUG INEFFECTIVE [None]
